FAERS Safety Report 9276325 (Version 1)
Quarter: 2013Q2

REPORT INFORMATION
  Report Type: Spontaneous
  Country: FR (occurrence: FR)
  Receive Date: 20130507
  Receipt Date: 20130507
  Transmission Date: 20140414
  Serious: Yes (Death, Other)
  Sender: FDA-Public Use
  Company Number: FR-PFIZER INC-2013140580

PATIENT
  Age: 62 Year
  Sex: Male

DRUGS (5)
  1. SUTENT [Suspect]
     Indication: METASTATIC RENAL CELL CARCINOMA
     Dosage: 50 MG (4 WEEKS ON, 2 WEEKS OFF)
     Dates: start: 200711, end: 2007
  2. SUTENT [Suspect]
     Dosage: 37.5 MG, CYCLIC
     Dates: start: 2007, end: 200802
  3. SUTENT [Suspect]
     Dosage: 37.5 MG PER DAY
     Dates: start: 200805, end: 201009
  4. SUTENT [Suspect]
     Dosage: UNK
     Dates: start: 201105, end: 2011
  5. SUTENT [Suspect]
     Dosage: UNK
     Dates: start: 201208

REACTIONS (10)
  - Death [Fatal]
  - Sepsis [Unknown]
  - Haematotoxicity [Unknown]
  - Disease progression [Unknown]
  - Metastatic renal cell carcinoma [Unknown]
  - Oedema [Unknown]
  - Blood creatinine increased [Unknown]
  - Leukopenia [Unknown]
  - Thrombocytopenia [Unknown]
  - Haematoma [Unknown]
